FAERS Safety Report 5774430-X (Version None)
Quarter: 2008Q2

REPORT INFORMATION
  Report Type: 
  Country: None (occurrence: None)
  Receive Date: 20080616
  Receipt Date: 20080605
  Transmission Date: 20081010
  Serious: Yes (Other)
  Sender: FDA-Public Use
  Company Number: FI-PFIZER INC-2008039280

PATIENT
  Sex: Female

DRUGS (8)
  1. DETRUSITOL SR [Suspect]
     Indication: URGE INCONTINENCE
     Route: 048
  2. PRIMASPAN [Concomitant]
  3. THYROXIN [Concomitant]
  4. CARDACE [Concomitant]
  5. HYDREX [Concomitant]
  6. SIMVASTATIN [Concomitant]
  7. SIFROL [Concomitant]
  8. ACETAMINOPHEN [Concomitant]

REACTIONS (2)
  - HYPERSENSITIVITY [None]
  - LIP OEDEMA [None]
